FAERS Safety Report 15969347 (Version 2)
Quarter: 2021Q4

REPORT INFORMATION
  Report Type: Spontaneous
  Country: GB (occurrence: GB)
  Receive Date: 20190215
  Receipt Date: 20211203
  Transmission Date: 20220303
  Serious: Yes (Other)
  Sender: FDA-Public Use
  Company Number: None

PATIENT
  Age: 55 Year
  Sex: Female
  Weight: 60.32 kg

DRUGS (3)
  1. VAGIFEM [Suspect]
     Active Substance: ESTRADIOL
     Indication: Hot flush
     Dosage: 1 DF
     Route: 067
     Dates: start: 20190104, end: 20190105
  2. NITROFURANTOIN [Concomitant]
     Active Substance: NITROFURANTOIN
     Route: 065
  3. SELEXID                            /00445301/ [Concomitant]
     Dosage: UNK
     Route: 065

REACTIONS (3)
  - Allergic reaction to excipient [Unknown]
  - Vulvovaginal swelling [Recovered/Resolved]
  - Vulvovaginal burning sensation [Recovered/Resolved]

NARRATIVE: CASE EVENT DATE: 20190105
